FAERS Safety Report 22294818 (Version 1)
Quarter: 2023Q2

REPORT INFORMATION
  Report Type: Spontaneous
  Country: US (occurrence: None)
  Receive Date: 20230505
  Receipt Date: 20230505
  Transmission Date: 20230721
  Serious: No
  Sender: FDA-Public Use
  Company Number: None

PATIENT
  Age: 23 Year
  Sex: Female
  Weight: 99.34 kg

DRUGS (1)
  1. LURASIDONE [Suspect]
     Active Substance: LURASIDONE
     Indication: Mood swings
     Dates: start: 20191105, end: 20230424

REACTIONS (30)
  - Muscular weakness [None]
  - Chest discomfort [None]
  - Pain [None]
  - Dizziness [None]
  - Muscle spasms [None]
  - Aphasia [None]
  - Headache [None]
  - Vomiting [None]
  - Peripheral swelling [None]
  - Limb discomfort [None]
  - Urticaria [None]
  - Urticaria [None]
  - Rash [None]
  - Fatigue [None]
  - Amnesia [None]
  - Asthenia [None]
  - Syncope [None]
  - Staring [None]
  - Temperature regulation disorder [None]
  - Seizure [None]
  - Vision blurred [None]
  - Weight increased [None]
  - Urinary tract infection [None]
  - Somnolence [None]
  - Insomnia [None]
  - Sleep apnoea syndrome [None]
  - Hepatic steatosis [None]
  - Laboratory test abnormal [None]
  - Drug ineffective [None]
  - Dehydration [None]

NARRATIVE: CASE EVENT DATE: 20211005
